FAERS Safety Report 14534041 (Version 1)
Quarter: 2018Q1

REPORT INFORMATION
  Report Type: Spontaneous
  Country: US (occurrence: US)
  Receive Date: 20180215
  Receipt Date: 20180215
  Transmission Date: 20180509
  Serious: No
  Sender: FDA-Public Use
  Company Number: US-PFIZER INC-2018067291

PATIENT
  Sex: Male

DRUGS (3)
  1. LORAZEPAM. [Suspect]
     Active Substance: LORAZEPAM
     Indication: SEIZURE
     Dosage: 0.5 MG, 2X/DAY (0.5 MG TABLET IN THE MORNING AND 0.5 MG TABLET AT NIGHT)
     Route: 048
     Dates: start: 201705
  2. DILANTIN [Suspect]
     Active Substance: PHENYTOIN
     Indication: SEIZURE
     Dosage: 200 MG, 2X/DAY (200 MG CAPSULES IN THE MORNING AND 200 MG AT NIGHT)
     Route: 048
  3. VIMPAT [Suspect]
     Active Substance: LACOSAMIDE
     Indication: SEIZURE
     Dosage: 200 MG, 2X/DAY (200 MG TABLET IN THE MORNING AND 200 MG AT NIGHT)
     Route: 048
     Dates: start: 201612

REACTIONS (2)
  - Drug effect incomplete [Unknown]
  - Cerebral disorder [Unknown]
